FAERS Safety Report 20232009 (Version 1)
Quarter: 2021Q4

REPORT INFORMATION
  Report Type: Spontaneous
  Country: US (occurrence: US)
  Receive Date: 20211227
  Receipt Date: 20211227
  Transmission Date: 20220303
  Serious: No
  Sender: FDA-Public Use
  Company Number: US-GW PHARMA-202112USGW06354

PATIENT

DRUGS (2)
  1. EPIDIOLEX [Interacting]
     Active Substance: CANNABIDIOL
     Indication: Product used for unknown indication
     Dosage: UNK
     Route: 048
  2. KLONOPIN [Interacting]
     Active Substance: CLONAZEPAM
     Indication: Product used for unknown indication
     Dosage: UNK
     Route: 065

REACTIONS (3)
  - Aphasia [Unknown]
  - Dysgraphia [Unknown]
  - Drug interaction [Unknown]

NARRATIVE: CASE EVENT DATE: 20211201
